FAERS Safety Report 9605926 (Version 4)
Quarter: 2013Q4

REPORT INFORMATION
  Report Type: Spontaneous
  Country: US (occurrence: US)
  Receive Date: 20131008
  Receipt Date: 20131227
  Transmission Date: 20140711
  Serious: Yes (Disabling, Other)
  Sender: FDA-Public Use
  Company Number: CHPA2013US015189

PATIENT
  Sex: Female

DRUGS (1)
  1. VOLTAREN GEL [Suspect]
     Indication: OSTEOARTHRITIS
     Dosage: ABOUT A QUARTER SIZE, QID PRN
     Route: 061

REACTIONS (13)
  - Disability [Not Recovered/Not Resolved]
  - Hernia [Recovered/Resolved]
  - Pain [Not Recovered/Not Resolved]
  - Wound secretion [Recovering/Resolving]
  - Scab [Recovering/Resolving]
  - Limb injury [Recovering/Resolving]
  - Rash [Recovered/Resolved]
  - Irritability [Not Recovered/Not Resolved]
  - Memory impairment [Unknown]
  - Balance disorder [Recovered/Resolved]
  - Fall [Recovered/Resolved]
  - Malaise [Unknown]
  - Wrong technique in drug usage process [Unknown]
